FAERS Safety Report 7911327-0 (Version None)
Quarter: 2011Q4

REPORT INFORMATION
  Report Type: 
  Country: None (occurrence: None)
  Receive Date: 20111114
  Receipt Date: 20111102
  Transmission Date: 20120403
  Serious: Yes (Disabling, Other)
  Sender: FDA-Public Use
  Company Number: US-ELI_LILLY_AND_COMPANY-US201109007968

PATIENT
  Sex: Male
  Weight: 114.29 kg

DRUGS (12)
  1. OXYGEN [Concomitant]
     Dosage: 2 L, UNK
     Route: 045
  2. SYMBICORT [Concomitant]
     Dosage: UNK, BID
  3. ASPIRIN [Concomitant]
     Dosage: 325 MG, QD
  4. HUMALOG [Suspect]
     Indication: DIABETES MELLITUS
     Dosage: 30 U, EACH MORNING
     Route: 058
     Dates: start: 20100701
  5. SPIRIVA [Concomitant]
     Dosage: UNK
  6. LASIX [Concomitant]
     Dosage: 20 MG, QD
  7. C-PAP [Concomitant]
     Dosage: UNK
  8. LANTUS [Concomitant]
     Dosage: 100 U, QD
     Route: 058
  9. METOPROLOL SUCCINATE [Concomitant]
     Dosage: 50 MG, QD
  10. QUINAPRIL [Concomitant]
     Dosage: 5 MG, QD
  11. FENOFIBRATE [Concomitant]
     Dosage: 134 MG, QD
  12. HUMALOG [Suspect]
     Dosage: 80 U, EACH EVENING
     Route: 058
     Dates: start: 20100701

REACTIONS (3)
  - CHRONIC OBSTRUCTIVE PULMONARY DISEASE [None]
  - CARDIAC FAILURE CONGESTIVE [None]
  - HYPOXIA [None]
